FAERS Safety Report 25981405 (Version 1)
Quarter: 2025Q4

REPORT INFORMATION
  Report Type: Spontaneous
  Country: US (occurrence: US)
  Receive Date: 20251030
  Receipt Date: 20251030
  Transmission Date: 20260118
  Serious: No
  Sender: ABBVIE
  Company Number: US-ABBVIE-6522678

PATIENT

DRUGS (1)
  1. CYCLOSPORINE [Suspect]
     Active Substance: CYCLOSPORINE
     Indication: Dry eye
     Dosage: CYCLOSPORINE OPTH (AUTHORIZED GENERIC)
     Route: 047

REACTIONS (2)
  - Eyelid margin crusting [Unknown]
  - Eyelid bleeding [Unknown]
